FAERS Safety Report 10011700 (Version 1)
Quarter: 2014Q1

REPORT INFORMATION
  Report Type: Report from Study
  Country: TN (occurrence: TN)
  Receive Date: 20140314
  Receipt Date: 20140314
  Transmission Date: 20141002
  Serious: Yes (Death)
  Sender: FDA-Public Use
  Company Number: TN-SA-2014SA029275

PATIENT
  Age: 59 Year
  Sex: Male

DRUGS (7)
  1. PLAVIX [Suspect]
     Indication: MYOCARDIAL INFARCTION
     Route: 048
     Dates: start: 20130908, end: 20140203
  2. PLAVIX [Suspect]
     Indication: STENT PLACEMENT
     Route: 048
     Dates: start: 20130908, end: 20140203
  3. ASPIRIN [Concomitant]
     Route: 048
     Dates: end: 20140203
  4. ATOR [Concomitant]
     Route: 048
     Dates: end: 20140203
  5. LOPRIL /FRA/ [Concomitant]
     Route: 048
     Dates: end: 20140203
  6. CORVASAL [Concomitant]
     Route: 048
     Dates: end: 20140203
  7. HYPOTEN [Concomitant]
     Route: 048
     Dates: end: 20140203

REACTIONS (1)
  - Chronic obstructive pulmonary disease [Fatal]
